FAERS Safety Report 20322810 (Version 1)
Quarter: 2022Q1

REPORT INFORMATION
  Report Type: Report from Study
  Country: GB (occurrence: GB)
  Receive Date: 20220111
  Receipt Date: 20220111
  Transmission Date: 20220423
  Serious: Yes (Death, Other)
  Sender: FDA-Public Use
  Company Number: GB-NOVARTISPH-NVSC2020GB034840

PATIENT
  Age: 67 Year
  Sex: Female

DRUGS (1)
  1. HYRIMOZ [Suspect]
     Active Substance: ADALIMUMAB-ADAZ
     Indication: Rheumatoid arthritis
     Dosage: UNK, Q2W (40MG/0.8 MG/ML)
     Route: 058
     Dates: start: 20190221

REACTIONS (8)
  - Death [Fatal]
  - Cerebrovascular accident [Recovering/Resolving]
  - Arthralgia [Unknown]
  - Weight decreased [Unknown]
  - Gait disturbance [Unknown]
  - Arthritis [Not Recovered/Not Resolved]
  - Wrong technique in device usage process [Not Recovered/Not Resolved]
  - Incorrect dose administered by device [Not Recovered/Not Resolved]

NARRATIVE: CASE EVENT DATE: 20190601
